FAERS Safety Report 5889739-9 (Version None)
Quarter: 2008Q3

REPORT INFORMATION
  Report Type: 
  Country: None (occurrence: None)
  Receive Date: 20080919
  Receipt Date: 20080909
  Transmission Date: 20090109
  Serious: Yes (Hospitalization, Other)
  Sender: FDA-Public Use
  Company Number: US-MERCK-0807USA03749

PATIENT
  Age: 47 Year
  Sex: Female

DRUGS (6)
  1. FOSAMAX [Suspect]
     Indication: OSTEOPOROSIS PROPHYLAXIS
     Route: 048
     Dates: start: 20031201, end: 20050901
  2. FOSAMAX [Suspect]
     Route: 048
     Dates: start: 20050601
  3. FOSAMAX [Suspect]
     Indication: OSTEOPOROSIS
     Route: 048
     Dates: start: 20031201, end: 20050901
  4. FOSAMAX [Suspect]
     Route: 048
     Dates: start: 20050601
  5. ZOMETA [Concomitant]
     Indication: OSTEOPOROSIS PROPHYLAXIS
     Route: 042
     Dates: start: 19960101, end: 20050101
  6. ZOMETA [Concomitant]
     Indication: OSTEOPOROSIS
     Route: 042
     Dates: start: 19960101, end: 20050101

REACTIONS (15)
  - ANXIETY [None]
  - BACK PAIN [None]
  - BREAST CANCER [None]
  - BREAST DISORDER [None]
  - DEPRESSION [None]
  - DRUG INEFFECTIVE [None]
  - IMPAIRED HEALING [None]
  - INSOMNIA [None]
  - MALAISE [None]
  - METASTASES TO SPINE [None]
  - METASTATIC NEOPLASM [None]
  - OSTEONECROSIS [None]
  - OSTEOPENIA [None]
  - OVARIAN DISORDER [None]
  - POSTOPERATIVE WOUND COMPLICATION [None]
